FAERS Safety Report 6978234-1 (Version None)
Quarter: 2010Q3

REPORT INFORMATION
  Report Type: 
  Country: None (occurrence: None)
  Receive Date: 20100913
  Receipt Date: 20100831
  Transmission Date: 20110219
  Serious: Yes (Hospitalization, Other)
  Sender: FDA-Public Use
  Company Number: CH-ELI_LILLY_AND_COMPANY-CH200911006702

PATIENT
  Age: 34 Year
  Sex: Female

DRUGS (4)
  1. ZYPREXA [Suspect]
     Indication: PERSONALITY DISORDER
     Dosage: 5 MG, ONE TIME
     Route: 065
     Dates: start: 20091001, end: 20091001
  2. ZYPREXA [Suspect]
     Dosage: 2.5 MG, IN RESERVE, DAILY (1/D)
     Route: 065
     Dates: start: 20090101
  3. IRON [Concomitant]
     Indication: MINERAL SUPPLEMENTATION
     Dosage: UNK, UNKNOWN
     Route: 065
  4. FOLIC ACID [Concomitant]
     Dosage: UNK, UNKNOWN
     Route: 065

REACTIONS (3)
  - DRUG EXPOSURE DURING PREGNANCY [None]
  - OFF LABEL USE [None]
  - STRESS [None]
